FAERS Safety Report 19108486 (Version 2)
Quarter: 2021Q2

REPORT INFORMATION
  Report Type: Spontaneous
  Country: US (occurrence: US)
  Receive Date: 20210408
  Receipt Date: 20210430
  Transmission Date: 20210717
  Serious: Yes (Other)
  Sender: FDA-Public Use
  Company Number: US-GLAXOSMITHKLINE-US2021GSK077167

PATIENT
  Sex: Female

DRUGS (5)
  1. RANITIDINE CAPSULE [Suspect]
     Active Substance: RANITIDINE
     Indication: PERIORBITAL OEDEMA
     Dosage: 150 MG, QD
     Route: 065
     Dates: start: 200601, end: 201909
  2. RANITIDINE HYDROCHLORIDE. [Suspect]
     Active Substance: RANITIDINE HYDROCHLORIDE
     Indication: PRODUCT USED FOR UNKNOWN INDICATION
     Dosage: UNK
     Route: 065
  3. ZANTAC [Suspect]
     Active Substance: RANITIDINE HYDROCHLORIDE
     Indication: PERIORBITAL OEDEMA
     Dosage: 150 MG, QD
     Route: 065
     Dates: start: 200601, end: 201909
  4. ZANTAC [Suspect]
     Active Substance: RANITIDINE HYDROCHLORIDE
     Indication: PERIORBITAL OEDEMA
     Dosage: 150 MG, QD
     Route: 065
     Dates: start: 200601, end: 201909
  5. ZANTAC [Suspect]
     Active Substance: RANITIDINE HYDROCHLORIDE
     Indication: PERIORBITAL OEDEMA
     Dosage: 150 MG, QD
     Route: 065
     Dates: start: 200601, end: 201909

REACTIONS (2)
  - Neoplasm malignant [Unknown]
  - Breast cancer [Unknown]
